FAERS Safety Report 9046454 (Version 1)
Quarter: 2013Q1

REPORT INFORMATION
  Report Type: Spontaneous
  Country: US (occurrence: None)
  Receive Date: 20130128
  Receipt Date: 20130128
  Transmission Date: 20140127
  Serious: Yes (Hospitalization)
  Sender: FDA-Public Use
  Company Number: None

PATIENT
  Age: 86 Year
  Sex: Female
  Weight: 70 kg

DRUGS (4)
  1. XARELTO 15 MG JANSSEN [Suspect]
     Indication: ATRIAL FIBRILLATION
     Route: 048
  2. PLAVIX [Suspect]
     Indication: CORONARY ARTERY DISEASE
     Route: 048
  3. FACTOR IX 2080 UNITS [Concomitant]
  4. 1 UNIT OF BLOOD [Concomitant]

REACTIONS (4)
  - Lower gastrointestinal haemorrhage [None]
  - Dyspnoea [None]
  - Fatigue [None]
  - Asthenia [None]
